FAERS Safety Report 15697340 (Version 2)
Quarter: 2019Q1

REPORT INFORMATION
  Report Type: Spontaneous
  Country: US (occurrence: US)
  Receive Date: 20181206
  Receipt Date: 20190105
  Transmission Date: 20190417
  Serious: No
  Sender: FDA-Public Use
  Company Number: US-JNJFOC-20181133660

PATIENT
  Age: 68 Year
  Sex: Female

DRUGS (1)
  1. IMBRUVICA [Suspect]
     Active Substance: IBRUTINIB
     Indication: PRODUCT USED FOR UNKNOWN INDICATION
     Route: 048

REACTIONS (2)
  - Dizziness [Recovered/Resolved]
  - Weight increased [Recovered/Resolved]

NARRATIVE: CASE EVENT DATE: 201809
